FAERS Safety Report 4858591-2 (Version None)
Quarter: 2005Q4

REPORT INFORMATION
  Report Type: 
  Country: None (occurrence: None)
  Receive Date: 20051219
  Receipt Date: 20051006
  Transmission Date: 20060501
  Serious: No
  Sender: FDA-Public Use
  Company Number: US-GLAXOSMITHKLINE-A0577310A

PATIENT
  Age: 51 Year
  Sex: Female

DRUGS (3)
  1. NICODERM CQ [Suspect]
     Dates: start: 20050927
  2. IBUPROFEN [Concomitant]
     Route: 048
  3. MUSCLE RELAXANT [Concomitant]

REACTIONS (1)
  - BLOOD PRESSURE INCREASED [None]
